FAERS Safety Report 4450790-7 (Version None)
Quarter: 2004Q3

REPORT INFORMATION
  Report Type: 
  Country: None (occurrence: None)
  Receive Date: 20040916
  Receipt Date: 20040902
  Transmission Date: 20050211
  Serious: Yes (Hospitalization)
  Sender: FDA-Public Use
  Company Number: JP-JNJFOC-20040607822

PATIENT
  Sex: Female

DRUGS (8)
  1. LEVOFLOXACIN [Suspect]
     Indication: GASTROENTERITIS
     Route: 049
  2. BUSCOPAN [Interacting]
     Indication: GASTROENTERITIS
     Route: 049
  3. CEREKINON [Concomitant]
     Indication: GASTROENTERITIS
     Route: 049
  4. BIOFERMIN [Concomitant]
     Route: 049
  5. BIOFERMIN [Concomitant]
     Route: 049
  6. BIOFERMIN [Concomitant]
     Indication: GASTROENTERITIS
     Route: 049
  7. BUSCOPAN [Concomitant]
     Route: 042
  8. GLUCOSE [Concomitant]
     Indication: GASTROENTERITIS
     Route: 042

REACTIONS (3)
  - ANAPHYLACTOID REACTION [None]
  - DRUG INTERACTION [None]
  - HEART RATE INCREASED [None]
